FAERS Safety Report 11335672 (Version 2)
Quarter: 2015Q3

REPORT INFORMATION
  Report Type: Spontaneous
  Country: GB (occurrence: GB)
  Receive Date: 20150804
  Receipt Date: 20150818
  Transmission Date: 20151125
  Serious: Yes (Other)
  Sender: FDA-Public Use
  Company Number: GB-PFIZER INC-2015246390

PATIENT
  Age: 81 Year
  Sex: Male

DRUGS (1)
  1. EPANUTIN [Suspect]
     Active Substance: PHENYTOIN SODIUM
     Dosage: UNK

REACTIONS (6)
  - Head injury [Unknown]
  - Traumatic intracranial haemorrhage [Unknown]
  - Rash [Unknown]
  - Seizure [Unknown]
  - Fall [Unknown]
  - Rash pruritic [Unknown]

NARRATIVE: CASE EVENT DATE: 201507
